FAERS Safety Report 22856454 (Version 3)
Quarter: 2023Q4

REPORT INFORMATION
  Report Type: Spontaneous
  Country: US (occurrence: US)
  Receive Date: 20230823
  Receipt Date: 20231122
  Transmission Date: 20240109
  Serious: Yes (Other)
  Sender: FDA-Public Use
  Company Number: US-PFIZER INC-202300282551

PATIENT
  Age: 62 Year
  Sex: Female
  Weight: 65.77 kg

DRUGS (5)
  1. BRAFTOVI [Suspect]
     Active Substance: ENCORAFENIB
     Indication: Malignant melanoma
     Dosage: 300 MG, 1X/DAY (4 CAPSULES EVERY MORNING)
     Dates: start: 2023
  2. BRAFTOVI [Suspect]
     Active Substance: ENCORAFENIB
     Dosage: 450 MG, 1X/DAY
     Route: 048
  3. MEKTOVI [Suspect]
     Active Substance: BINIMETINIB
     Indication: Malignant melanoma
     Dosage: 30 MG, 2X/DAY (TWO TABLETS IN THE MORNING AND TWO TABLETS AT NIGHT)
     Dates: start: 2023
  4. MEKTOVI [Suspect]
     Active Substance: BINIMETINIB
     Dosage: 45 MG, 2X/DAY (45 MG (3 TABLETS) EVERY 12 HOURS)
     Route: 048
  5. ASPIRIN [Concomitant]
     Active Substance: ASPIRIN
     Indication: Pain
     Dosage: UNK

REACTIONS (3)
  - Second primary malignancy [Unknown]
  - Colon cancer [Unknown]
  - Product prescribing issue [Unknown]
